FAERS Safety Report 4491894-2 (Version None)
Quarter: 2004Q4

REPORT INFORMATION
  Report Type: 
  Country: None (occurrence: None)
  Receive Date: 20041029
  Receipt Date: 20041029
  Transmission Date: 20050328
  Serious: Yes (Hospitalization)
  Sender: FDA-Public Use
  Company Number: None

PATIENT
  Sex: Male
  Weight: 60.782 kg

DRUGS (5)
  1. CISPLATIN [Suspect]
     Indication: OESOPHAGEAL SQUAMOUS CELL CARCINOMA
     Dosage: 133/354 MG D1-5/D1 INTRAVENOUS
     Route: 042
     Dates: start: 20041011, end: 20041015
  2. FLUOROURACIL [Suspect]
     Indication: OESOPHAGEAL SQUAMOUS CELL CARCINOMA
     Dosage: 5752 MG D1-5-C1 INTRAVENOUS
     Route: 042
     Dates: start: 20041011, end: 20041015
  3. PACLITAXEL [Suspect]
  4. MORPHINE SULFATE [Concomitant]
  5. ISOCAL [Concomitant]

REACTIONS (6)
  - DYSPNOEA [None]
  - OESOPHAGOBRONCHIAL FISTULA [None]
  - PNEUMONIA ASPIRATION [None]
  - REGURGITATION OF FOOD [None]
  - RESPIRATORY DISTRESS [None]
  - TUMOUR NECROSIS [None]
